FAERS Safety Report 8348933-8 (Version None)
Quarter: 2012Q2

REPORT INFORMATION
  Report Type: 
  Country: None (occurrence: None)
  Receive Date: 20120508
  Receipt Date: 20120423
  Transmission Date: 20120825
  Serious: Yes (Other)
  Sender: FDA-Public Use
  Company Number: 2012MA005303

PATIENT
  Age: 54 Year
  Sex: Female

DRUGS (4)
  1. PACLITAXEL [Suspect]
     Indication: BREAST CANCER STAGE III
  2. CYCLOPHOSPHAMIDE [Suspect]
     Indication: BREAST CANCER STAGE III
  3. DOXORUBICIN HCL [Suspect]
     Indication: BREAST CANCER STAGE III
  4. HERCEPTIN [Suspect]
     Indication: BREAST CANCER STAGE III

REACTIONS (2)
  - MYELODYSPLASTIC SYNDROME [None]
  - ACUTE MYELOID LEUKAEMIA [None]
